FAERS Safety Report 7833138-7 (Version None)
Quarter: 2011Q4

REPORT INFORMATION
  Report Type: 
  Country: None (occurrence: None)
  Receive Date: 20111024
  Receipt Date: 20111014
  Transmission Date: 20120403
  Serious: Yes (Hospitalization, Other)
  Sender: FDA-Public Use
  Company Number: US-JNJFOC-20110806504

PATIENT
  Sex: Female
  Weight: 63.5 kg

DRUGS (2)
  1. RISPERIDONE [Suspect]
     Indication: SCHIZOPHRENIA
     Route: 048
     Dates: start: 20010101
  2. RISPERDAL CONSTA [Suspect]
     Indication: SCHIZOPHRENIA
     Route: 030
     Dates: start: 20091201, end: 20110729

REACTIONS (11)
  - GAIT DISTURBANCE [None]
  - ARTHRALGIA [None]
  - VISION BLURRED [None]
  - HEART RATE INCREASED [None]
  - CEREBROVASCULAR ACCIDENT [None]
  - JOINT STIFFNESS [None]
  - ARTHRITIS [None]
  - ARTHROPATHY [None]
  - MUSCULAR WEAKNESS [None]
  - SCHIZOPHRENIA [None]
  - LOSS OF CONTROL OF LEGS [None]
